FAERS Safety Report 13347673 (Version 1)
Quarter: 2017Q1

REPORT INFORMATION
  Report Type: Report from Study
  Country: US (occurrence: US)
  Receive Date: 20170317
  Receipt Date: 20170317
  Transmission Date: 20170428
  Serious: Yes (Hospitalization)
  Sender: FDA-Public Use
  Company Number: US-ACTELION-A-US2015-118898

PATIENT
  Age: 74 Year
  Sex: Female
  Weight: 95.24 kg

DRUGS (4)
  1. KEPPRA [Concomitant]
     Active Substance: LEVETIRACETAM
  2. TRACLEER [Suspect]
     Active Substance: BOSENTAN
     Indication: PULMONARY ARTERIAL HYPERTENSION
     Dosage: 125 MG, BID
     Route: 048
     Dates: start: 20060208
  3. COUMADIN [Concomitant]
     Active Substance: WARFARIN SODIUM
     Indication: PULMONARY HYPERTENSION
  4. TRACLEER [Suspect]
     Active Substance: BOSENTAN
     Dosage: 125 MG, BID
     Route: 048

REACTIONS (7)
  - Memory impairment [Unknown]
  - Restless legs syndrome [Unknown]
  - Muscle spasms [Unknown]
  - Rhinorrhoea [Unknown]
  - Heart rate abnormal [Unknown]
  - Lethargy [Unknown]
  - Cough [Unknown]
